FAERS Safety Report 18608394 (Version 2)
Quarter: 2021Q1

REPORT INFORMATION
  Report Type: Spontaneous
  Country: JP (occurrence: JP)
  Receive Date: 20201212
  Receipt Date: 20210210
  Transmission Date: 20210419
  Serious: Yes (Hospitalization, Other)
  Sender: FDA-Public Use
  Company Number: JP-JNJFOC-20201219642

PATIENT
  Age: 78 Year
  Sex: Male

DRUGS (1)
  1. RIVAROXABAN [Suspect]
     Active Substance: RIVAROXABAN
     Indication: PROPHYLAXIS
     Route: 048
     Dates: start: 20200401, end: 20200928

REACTIONS (2)
  - Cerebral infarction [Recovered/Resolved with Sequelae]
  - Mental impairment [Unknown]

NARRATIVE: CASE EVENT DATE: 20200928
